FAERS Safety Report 20593953 (Version 3)
Quarter: 2022Q2

REPORT INFORMATION
  Report Type: Spontaneous
  Country: JP (occurrence: JP)
  Receive Date: 20220315
  Receipt Date: 20220614
  Transmission Date: 20220721
  Serious: Yes (Death, Hospitalization, Other)
  Sender: FDA-Public Use
  Company Number: JP-BRISTOL-MYERS SQUIBB COMPANY-BMS-2022-039022

PATIENT
  Age: 73 Year
  Sex: Male
  Weight: 60 kg

DRUGS (4)
  1. YERVOY [Suspect]
     Active Substance: IPILIMUMAB
     Indication: Non-small cell lung cancer
     Route: 041
     Dates: start: 20211102, end: 20211102
  2. OPDIVO [Suspect]
     Active Substance: NIVOLUMAB
     Indication: Non-small cell lung cancer
     Route: 041
     Dates: start: 20211102, end: 20211102
  3. CARBOPLATIN [Concomitant]
     Active Substance: CARBOPLATIN
     Indication: Non-small cell lung cancer recurrent
     Dosage: 450 MG
     Route: 041
     Dates: start: 20211102, end: 20211102
  4. PACLITAXEL [Concomitant]
     Active Substance: PACLITAXEL
     Indication: Non-small cell lung cancer recurrent
     Dosage: 320 MG
     Route: 041
     Dates: start: 20211102, end: 20211102

REACTIONS (2)
  - Sepsis [Fatal]
  - Malignant neoplasm progression [Fatal]
